FAERS Safety Report 8923798 (Version 3)
Quarter: 2013Q1

REPORT INFORMATION
  Report Type: Spontaneous
  Country: US (occurrence: US)
  Receive Date: 20121126
  Receipt Date: 20130103
  Transmission Date: 20140127
  Serious: Yes (Life-Threatening, Hospitalization, Disabling, Other)
  Sender: FDA-Public Use
  Company Number: US-B.I. PHARMACEUTICALS,INC./RIDGEFIELD-2012-BI-00798BP

PATIENT
  Age: 60 Year
  Sex: Male
  Weight: 92.4 kg

DRUGS (7)
  1. PRADAXA [Suspect]
     Indication: CEREBROVASCULAR ACCIDENT PROPHYLAXIS
     Dosage: 300 MG
     Dates: start: 20121025, end: 20121120
  2. PRADAXA [Suspect]
     Indication: ATRIAL FIBRILLATION
  3. ATRIPLA [Suspect]
     Indication: HIV INFECTION
  4. ANTIRETROVIRALS [Concomitant]
  5. LISINOPRIL [Concomitant]
     Indication: HYPERTENSION
     Dosage: 10 MG
     Dates: start: 20121026
  6. TOPROL XL [Concomitant]
     Indication: ATRIAL FIBRILLATION
     Dosage: 400 MG
     Dates: start: 20121026
  7. DILTIAZEM [Concomitant]
     Indication: ATRIAL FIBRILLATION

REACTIONS (2)
  - Cerebrovascular accident [Not Recovered/Not Resolved]
  - Drug interaction [Unknown]
